FAERS Safety Report 4684526-1 (Version None)
Quarter: 2005Q2

REPORT INFORMATION
  Report Type: 
  Country: None (occurrence: None)
  Receive Date: 20050603
  Receipt Date: 20050519
  Transmission Date: 20051028
  Serious: Yes (Hospitalization)
  Sender: FDA-Public Use
  Company Number: 2005BI006589

PATIENT
  Age: 34 Year
  Sex: Female
  Weight: 53 kg

DRUGS (6)
  1. AVONEX [Suspect]
     Indication: MULTIPLE SCLEROSIS
     Dosage: 30 UG; QW; IM
     Route: 030
     Dates: start: 20050304
  2. IBUPROFEN [Concomitant]
  3. BACLOFEN [Concomitant]
  4. CALCICHEW [Concomitant]
  5. FOSAMAX [Concomitant]
  6. ZOTON [Concomitant]

REACTIONS (7)
  - EYE PRURITUS [None]
  - INJECTION SITE PAIN [None]
  - MULTIPLE SCLEROSIS RELAPSE [None]
  - PARALYSIS [None]
  - PLASMAPHERESIS [None]
  - URTICARIA [None]
  - VISUAL DISTURBANCE [None]
